FAERS Safety Report 6906837-9 (Version None)
Quarter: 2010Q3

REPORT INFORMATION
  Report Type: 
  Country: None (occurrence: None)
  Receive Date: 20100804
  Receipt Date: 20100723
  Transmission Date: 20110219
  Serious: Yes (Other)
  Sender: FDA-Public Use
  Company Number: US-ELI_LILLY_AND_COMPANY-US201007005937

PATIENT
  Sex: Female
  Weight: 104.31 kg

DRUGS (4)
  1. BYETTA [Suspect]
  2. GLUCOPHAGE [Concomitant]
     Indication: DIABETES MELLITUS
  3. LIPITOR [Concomitant]
     Indication: BLOOD CHOLESTEROL
  4. EFFEXOR [Concomitant]
     Indication: DEPRESSION

REACTIONS (2)
  - PANCREATITIS ACUTE [None]
  - PANCREATITIS CHRONIC [None]
